FAERS Safety Report 6496691-4 (Version None)
Quarter: 2009Q4

REPORT INFORMATION
  Report Type: 
  Country: None (occurrence: None)
  Receive Date: 20091210
  Receipt Date: 20091125
  Transmission Date: 20100525
  Serious: Yes (Life-Threatening, Other)
  Sender: FDA-Public Use
  Company Number: AUR-APL-2009-01403

PATIENT
  Age: 58 Year
  Sex: Male

DRUGS (4)
  1. MIRTAZAPINE [Suspect]
     Dosage: ORAL
     Route: 048
  2. BACLOFEN [Suspect]
     Dosage: ORAL
     Route: 048
  3. GABAPENTIN [Concomitant]
  4. MESALAZINE [Concomitant]

REACTIONS (3)
  - COMA SCALE ABNORMAL [None]
  - DIABETES INSIPIDUS [None]
  - OVERDOSE [None]
